FAERS Safety Report 10530006 (Version 1)
Quarter: 2014Q4

REPORT INFORMATION
  Report Type: Spontaneous
  Country: IT (occurrence: None)
  Receive Date: 20141017
  Receipt Date: 20141017
  Transmission Date: 20150528
  Serious: Yes (Other)
  Sender: FDA-Public Use
  Company Number: 7326454

PATIENT
  Age: 24 Year
  Sex: Female

DRUGS (1)
  1. EUTIROX [Suspect]
     Active Substance: LEVOTHYROXINE SODIUM
     Indication: PRODUCT USED FOR UNKNOWN INDICATION
     Route: 048
     Dates: start: 20131211, end: 20131213

REACTIONS (5)
  - Anxiety [None]
  - Paraesthesia [None]
  - Tremor [None]
  - Hyperhidrosis [None]
  - Decreased appetite [None]

NARRATIVE: CASE EVENT DATE: 20131211
